FAERS Safety Report 19795780 (Version 1)
Quarter: 2021Q3

REPORT INFORMATION
  Report Type: Spontaneous
  Country: US (occurrence: US)
  Receive Date: 20210907
  Receipt Date: 20210907
  Transmission Date: 20211014
  Serious: No
  Sender: FDA-Public Use
  Company Number: US-SUN PHARMACEUTICAL INDUSTRIES LTD-2021R1-301227

PATIENT
  Sex: Female

DRUGS (1)
  1. CEQUA [Suspect]
     Active Substance: CYCLOSPORINE
     Indication: DRY EYE
     Dosage: 1 DROP, 4?5 TIMES INSTEAD OF 2 TIMES A DAY
     Route: 047
     Dates: start: 20191115, end: 20210616

REACTIONS (4)
  - Extra dose administered [Unknown]
  - Vision blurred [Unknown]
  - Eye pain [Unknown]
  - Condition aggravated [Unknown]
